FAERS Safety Report 10067893 (Version 1)
Quarter: 2014Q2

REPORT INFORMATION
  Report Type: Report from Study
  Country: CA (occurrence: CA)
  Receive Date: 20140409
  Receipt Date: 20140409
  Transmission Date: 20141212
  Serious: Yes (Hospitalization)
  Sender: FDA-Public Use
  Company Number: CA-BRISTOL-MYERS SQUIBB COMPANY-20593380

PATIENT
  Age: 48 Year
  Sex: Female

DRUGS (12)
  1. ABATACEPT SUBQ INJECTION 125MG/ML [Suspect]
     Indication: RHEUMATOID ARTHRITIS
     Dosage: 1DF = SC 125 NO LOADINGDOSE?INTERRUPTED
     Route: 058
     Dates: start: 20140218
  2. CREON [Concomitant]
  3. CLONAZEPAM [Concomitant]
  4. WELLBUTRIN [Concomitant]
  5. CITALOPRAM [Concomitant]
  6. NEXIUM [Concomitant]
  7. FUROSEMIDE [Concomitant]
  8. IRON [Concomitant]
  9. ADALAT [Concomitant]
  10. ADVAIR [Concomitant]
  11. SALBUTAMOL [Concomitant]
  12. ABILIFY [Concomitant]

REACTIONS (2)
  - Pancreatitis [Recovering/Resolving]
  - Fatigue [Unknown]
